FAERS Safety Report 5772480-0 (Version None)
Quarter: 2008Q2

REPORT INFORMATION
  Report Type: 
  Country: None (occurrence: None)
  Receive Date: 20080613
  Receipt Date: 20080605
  Transmission Date: 20081010
  Serious: Yes (Other)
  Sender: FDA-Public Use
  Company Number: TR-ELI_LILLY_AND_COMPANY-TR200806001366

PATIENT
  Age: 66 Year
  Sex: Female

DRUGS (2)
  1. HUMULIN 70/30 [Suspect]
     Indication: DIABETES MELLITUS
     Route: 058
     Dates: start: 20080516, end: 20080605
  2. HUMULIN 70/30 [Suspect]
     Dosage: 16 IU, EACH EVENING
     Route: 058
     Dates: start: 20080516, end: 20080605

REACTIONS (2)
  - POST PROCEDURAL INFECTION [None]
  - URINARY INCONTINENCE [None]
